FAERS Safety Report 9428957 (Version 1)
Quarter: 2013Q3

REPORT INFORMATION
  Report Type: Spontaneous
  Country: JP (occurrence: JP)
  Receive Date: 20130730
  Receipt Date: 20130730
  Transmission Date: 20140515
  Serious: Yes (Hospitalization, Other)
  Sender: FDA-Public Use
  Company Number: JP-PFIZER INC-2013212065

PATIENT
  Age: 75 Year
  Sex: Male

DRUGS (8)
  1. GABAPEN [Suspect]
     Dosage: UNK
     Route: 048
  2. TAKEPRON [Suspect]
     Dosage: UNK
  3. LENDORMIN [Suspect]
     Dosage: UNK
  4. PLAVIX [Suspect]
     Dosage: UNK
  5. TEGRETOL [Suspect]
     Dosage: UNK
  6. MAGNESIUM OXIDE [Suspect]
     Dosage: UNK
  7. EXFORGE [Suspect]
     Dosage: UNK
  8. ASPIRIN [Suspect]

REACTIONS (2)
  - Wrong technique in drug usage process [Unknown]
  - Ileus paralytic [Recovered/Resolved]
